FAERS Safety Report 9834740 (Version 2)
Quarter: 2014Q1

REPORT INFORMATION
  Report Type: Spontaneous
  Country: US (occurrence: US)
  Receive Date: 20140122
  Receipt Date: 20140122
  Transmission Date: 20141002
  Serious: Yes (Death)
  Sender: FDA-Public Use
  Company Number: US-BAXTER-2014BAX002137

PATIENT
  Sex: Male

DRUGS (11)
  1. DIANEAL PD2 [Suspect]
     Indication: PERITONEAL DIALYSIS
     Route: 033
  2. DIANEAL PD2 [Suspect]
     Indication: RENAL FAILURE CHRONIC
  3. DIANEAL PD2 [Suspect]
     Indication: PERITONEAL DIALYSIS
     Route: 033
  4. DIANEAL PD2 [Suspect]
     Indication: RENAL FAILURE CHRONIC
  5. DIANEAL PD2 (ULTRABAG) [Suspect]
     Indication: PERITONEAL DIALYSIS
     Route: 033
  6. DIANEAL PD2 (ULTRABAG) [Suspect]
     Indication: RENAL FAILURE CHRONIC
  7. DIANEAL PD2 (ULTRABAG) [Suspect]
     Indication: PERITONEAL DIALYSIS
     Route: 033
  8. DIANEAL PD2 (ULTRABAG) [Suspect]
     Indication: RENAL FAILURE CHRONIC
  9. EXTRANEAL [Suspect]
     Indication: PERITONEAL DIALYSIS
     Route: 033
  10. EXTRANEAL [Suspect]
     Indication: RENAL FAILURE CHRONIC
  11. EXTRANEAL [Suspect]
     Indication: PERITONEAL DIALYSIS

REACTIONS (1)
  - Pancreatic carcinoma [Fatal]
